FAERS Safety Report 15979687 (Version 3)
Quarter: 2019Q2

REPORT INFORMATION
  Report Type: Spontaneous
  Country: FR (occurrence: FR)
  Receive Date: 20190219
  Receipt Date: 20190410
  Transmission Date: 20190711
  Serious: Yes (Hospitalization, Other)
  Sender: FDA-Public Use
  Company Number: FR-AUROBINDO-AUR-APL-2019-009666

PATIENT

DRUGS (13)
  1. ADOPORT [Suspect]
     Active Substance: TACROLIMUS
     Dosage: 5.5 MILLIGRAM
     Route: 048
     Dates: start: 20181212, end: 20181212
  2. ADOPORT [Suspect]
     Active Substance: TACROLIMUS
     Dosage: 5.5 MILLIGRAM
     Route: 048
     Dates: start: 20181213, end: 20181213
  3. METHYLPREDNISOLONE. [Suspect]
     Active Substance: METHYLPREDNISOLONE
     Indication: IMMUNOSUPPRESSION
     Dosage: 250 MILLIGRAM PER LITRE
     Route: 065
     Dates: start: 20181211, end: 20190112
  4. VALGANCICLOVIR. [Suspect]
     Active Substance: VALGANCICLOVIR
     Indication: PROPHYLAXIS
     Dosage: 450 MILLIGRAM PER LITRE
     Route: 065
     Dates: start: 20181229, end: 20190304
  5. ADOPORT [Suspect]
     Active Substance: TACROLIMUS
     Dosage: 7 MILLIGRAM
     Route: 048
     Dates: start: 20181214, end: 20181214
  6. ADOPORT [Suspect]
     Active Substance: TACROLIMUS
     Dosage: 10 MILLIGRAM
     Route: 048
     Dates: start: 20181215, end: 20181224
  7. MYFORTIC [Suspect]
     Active Substance: MYCOPHENOLATE SODIUM
     Indication: TRANSPLANT
     Dosage: UNK
     Route: 065
  8. ADOPORT [Suspect]
     Active Substance: TACROLIMUS
     Indication: RENAL TRANSPLANT
     Dosage: 11 MILLIGRAM
     Route: 048
     Dates: start: 20181212
  9. MYFORTIC [Suspect]
     Active Substance: MYCOPHENOLATE SODIUM
     Dosage: 720 MILLIGRAM PER LITRE
     Route: 065
     Dates: start: 20190103, end: 20190214
  10. THYMOGLOBULINE [Suspect]
     Active Substance: LAPINE T-LYMPHOCYTE IMMUNE GLOBULIN
     Indication: IMMUNOSUPPRESSION
     Dosage: UNK
     Route: 065
     Dates: start: 20181211, end: 20181212
  11. ADOPORT [Suspect]
     Active Substance: TACROLIMUS
     Dosage: 9 MILLIGRAM
     Route: 048
     Dates: start: 20181212
  12. ADOPORT [Suspect]
     Active Substance: TACROLIMUS
     Dosage: 5 MILLIGRAM
     Route: 048
     Dates: start: 20181212, end: 20181213
  13. ADOPORT [Suspect]
     Active Substance: TACROLIMUS
     Dosage: 20 MILLIGRAM
     Route: 048
     Dates: start: 20181225, end: 20190107

REACTIONS (9)
  - Leukopenia [Recovered/Resolved]
  - Overdose [Recovered/Resolved]
  - Hyperglycaemia [Recovered/Resolved]
  - Paraesthesia [Recovered/Resolved]
  - Hypophosphataemia [Recovered/Resolved]
  - Anaemia [Recovered/Resolved]
  - Diarrhoea [Not Recovered/Not Resolved]
  - Renal impairment [Recovering/Resolving]
  - Thrombocytopenia [Recovered/Resolved]

NARRATIVE: CASE EVENT DATE: 20181213
